FAERS Safety Report 7755614-8 (Version None)
Quarter: 2011Q3

REPORT INFORMATION
  Report Type: 
  Country: None (occurrence: None)
  Receive Date: 20110914
  Receipt Date: 20110824
  Transmission Date: 20111222
  Serious: Yes (Other)
  Sender: FDA-Public Use
  Company Number: 54973 AE # 555

PATIENT
  Age: 75 Year
  Sex: Male

DRUGS (3)
  1. IBUPROFEN [Suspect]
     Dosage: EVERY DAY
  2. HYLAND'S LEG CRAMPS WITH QUININE CAPLETS [Suspect]
     Dosage: EVERY DAY
  3. HYLAND'S LEG CRAMPS WITH QUININE CAPLETS [Suspect]
     Indication: ANALGESIC THERAPY
     Dosage: 2 CAPLETS DAILY X 2 WKS,

REACTIONS (1)
  - ANGINA PECTORIS [None]
